FAERS Safety Report 14220806 (Version 1)
Quarter: 2017Q4

REPORT INFORMATION
  Report Type: Report from Study
  Country: CN (occurrence: CN)
  Receive Date: 20171124
  Receipt Date: 20171124
  Transmission Date: 20180321
  Serious: Yes (Death, Other)
  Sender: FDA-Public Use
  Company Number: CN-ASTRAZENECA-2017SF12824

PATIENT
  Age: 26762 Day
  Sex: Female

DRUGS (1)
  1. FASLODEX [Suspect]
     Active Substance: FULVESTRANT
     Indication: BREAST CANCER
     Dosage: 250MG*2 MONTHLY
     Route: 030
     Dates: start: 20160525

REACTIONS (4)
  - Metastases to bone [Fatal]
  - Dyspnoea [Unknown]
  - Interstitial lung disease [Fatal]
  - Malignant neoplasm progression [Unknown]

NARRATIVE: CASE EVENT DATE: 20170328
